FAERS Safety Report 6674012-1 (Version None)
Quarter: 2010Q2

REPORT INFORMATION
  Report Type: 
  Country: None (occurrence: None)
  Receive Date: 20100409
  Receipt Date: 20100331
  Transmission Date: 20101027
  Serious: Yes (Hospitalization)
  Sender: FDA-Public Use
  Company Number: US-JNJFOC-20100400896

PATIENT
  Sex: Male
  Weight: 77.11 kg

DRUGS (8)
  1. FENTANYL [Suspect]
     Indication: PAIN
     Route: 062
  2. FENTANYL [Suspect]
     Route: 062
  3. FENTANYL [Suspect]
     Route: 062
  4. FENTANYL [Suspect]
     Route: 062
  5. FENTANYL [Suspect]
     Route: 062
  6. FENTANYL [Suspect]
     Indication: PAIN
     Route: 062
  7. GABAPENTIN [Concomitant]
     Indication: BACK PAIN
     Route: 048
  8. TRAMADOL HCL [Concomitant]
     Indication: BACK PAIN
     Route: 048

REACTIONS (4)
  - BACK DISORDER [None]
  - NERVE COMPRESSION [None]
  - PRODUCT ADHESION ISSUE [None]
  - WRONG TECHNIQUE IN DRUG USAGE PROCESS [None]
